FAERS Safety Report 4310976-9 (Version None)
Quarter: 2004Q1

REPORT INFORMATION
  Report Type: 
  Country: None (occurrence: None)
  Receive Date: 20040304
  Receipt Date: 20040225
  Transmission Date: 20041129
  Serious: Yes (Death, Hospitalization)
  Sender: FDA-Public Use
  Company Number: PHBS2004US02742

PATIENT
  Age: 21 Year
  Sex: Female

DRUGS (5)
  1. CYCLOSPORINE [Suspect]
     Indication: BONE MARROW TRANSPLANT
     Route: 065
     Dates: start: 20020501
  2. THIOTEPA [Suspect]
     Route: 065
  3. CYCLOPHOSPHAMIDE [Suspect]
     Indication: BONE MARROW TRANSPLANT
  4. IRRADIATION [Suspect]
     Indication: BONE MARROW TRANSPLANT
  5. ANTILYMPHOCYTE GLOBULIN [Suspect]
     Indication: BONE MARROW TRANSPLANT
     Route: 065

REACTIONS (13)
  - ABDOMINAL DISTENSION [None]
  - BACTERAEMIA [None]
  - CANDIDIASIS [None]
  - CYTOMEGALOVIRUS ANTIGEN POSITIVE [None]
  - FUNGAL INFECTION [None]
  - HAEMORRHAGE INTRACRANIAL [None]
  - ILEUS [None]
  - MICROSPORIDIA INFECTION [None]
  - PNEUMONITIS [None]
  - RESPIRATORY DISTRESS [None]
  - RESPIRATORY FAILURE [None]
  - TORULOPSIS INFECTION [None]
  - TOXOPLASMOSIS [None]
